FAERS Safety Report 16692857 (Version 3)
Quarter: 2020Q1

REPORT INFORMATION
  Report Type: Spontaneous
  Country: NO (occurrence: NO)
  Receive Date: 20190812
  Receipt Date: 20200221
  Transmission Date: 20200409
  Serious: Yes (Life-Threatening, Hospitalization, Other)
  Sender: FDA-Public Use
  Company Number: NO-MYLANLABS-2019M1073879

PATIENT
  Age: 22 Year
  Sex: Female
  Weight: 55 kg

DRUGS (10)
  1. EPINEPHRINE. [Suspect]
     Active Substance: EPINEPHRINE
     Indication: HAEMORRHAGE PROPHYLAXIS
  2. LIDOCAINE. [Suspect]
     Active Substance: LIDOCAINE
     Dosage: 2.2 MILLIGRAM/KILOGRAM
     Route: 058
  3. EPINEPHRINE. [Suspect]
     Active Substance: EPINEPHRINE
     Indication: PULSELESS ELECTRICAL ACTIVITY
     Dosage: EPINEPHRINE 1MG IV TWICE
     Route: 042
  4. LIDOCAINE. [Suspect]
     Active Substance: LIDOCAINE
     Indication: LOCAL ANAESTHESIA
     Dosage: 6ML OF 2%; INJECTED INTO THE SUBMUCOSA..
     Route: 045
  5. EPINEPHRINE. [Suspect]
     Active Substance: EPINEPHRINE
     Indication: LOCAL ANAESTHESIA
  6. AMIODARONE [Suspect]
     Active Substance: AMIODARONE
     Indication: PULSELESS ELECTRICAL ACTIVITY
     Dosage: 300 MILLIGRAM
     Route: 042
  7. ATROPINE. [Suspect]
     Active Substance: ATROPINE
     Indication: PULSELESS ELECTRICAL ACTIVITY
     Dosage: 1 MILLIGRAM
     Route: 042
  8. REMIFENTANIL                       /01229902/ [Concomitant]
     Active Substance: REMIFENTANIL HYDROCHLORIDE
     Indication: GENERAL ANAESTHESIA
     Dosage: UNK
     Route: 042
  9. EPINEPHRINE. [Suspect]
     Active Substance: EPINEPHRINE
     Indication: VASOCONSTRICTION
     Dosage: 15 MCG/ML;INJECTED INTO THE SUBMUCOSA..
     Route: 045
  10. PROPOFOL. [Concomitant]
     Active Substance: PROPOFOL
     Indication: GENERAL ANAESTHESIA
     Dosage: UNK
     Route: 042

REACTIONS (7)
  - Haemodynamic instability [Recovered/Resolved]
  - Pulseless electrical activity [Recovered/Resolved]
  - Pulmonary oedema [Recovered/Resolved]
  - Left ventricular dysfunction [Recovered/Resolved]
  - Drug ineffective [Recovered/Resolved]
  - Local anaesthetic systemic toxicity [Recovered/Resolved]
  - Cardiac arrest [Recovered/Resolved]
